FAERS Safety Report 7950738-4 (Version None)
Quarter: 2011Q4

REPORT INFORMATION
  Report Type: 
  Country: None (occurrence: None)
  Receive Date: 20111123
  Receipt Date: 20111110
  Transmission Date: 20120403
  Serious: Yes (Death, Life-Threatening, Hospitalization, Disabling, Other)
  Sender: FDA-Public Use
  Company Number: 2009AL004452

PATIENT
  Age: 23 Year
  Sex: Female
  Weight: 125 kg

DRUGS (164)
  1. SPIRONOLACTONE [Concomitant]
  2. GUAIFENESIN [Concomitant]
  3. LIPITOR [Concomitant]
  4. LISINOPRIL [Concomitant]
  5. ATIVAN [Concomitant]
  6. FLUOCONAZOLE [Concomitant]
  7. LEVOPHED [Concomitant]
  8. DILAUDID [Concomitant]
  9. ALDACTONE [Concomitant]
  10. DIPHENHYDRAMINE HCL [Concomitant]
  11. HYDROMORPHONE HCL [Concomitant]
  12. ONDANSETRON [Suspect]
  13. PITOCIN [Concomitant]
  14. VASOPRESSOR [Concomitant]
  15. NORCO [Concomitant]
  16. POTASSIUM CHLORIDE [Concomitant]
  17. ZAROXOLYN [Concomitant]
  18. KAY CIEL DURA-TABS [Concomitant]
  19. DIPYRIDAMOLE [Concomitant]
  20. COUMADIN [Concomitant]
  21. KENALOG [Concomitant]
  22. CLOMID [Concomitant]
  23. XENICAL [Concomitant]
  24. AMOXICILLIN [Concomitant]
  25. LOVENOX [Concomitant]
  26. HYDROCHLOROTHIAZIDE [Concomitant]
  27. TORSEMIDE [Concomitant]
  28. ARANESP [Concomitant]
  29. CLONIDINE [Concomitant]
  30. CLOMIPHENE CITRATE [Concomitant]
  31. LACTOBACILLUS ACIDOPHILUS [Concomitant]
  32. GUAIFENESIN [Concomitant]
  33. PHOSPHORUS [Concomitant]
  34. PROPOFOL [Concomitant]
  35. DARBOPOETIN [Concomitant]
  36. METOPROLOL [Concomitant]
  37. METOLAZONE [Concomitant]
  38. ZOLPIDEM [Concomitant]
  39. CLAFORAN SHOT [Concomitant]
  40. MULTI-VITAMINS [Concomitant]
  41. VICODIN [Concomitant]
  42. ALLEGRA [Concomitant]
  43. AUGMENTIN [Concomitant]
  44. EPLERONONE [Concomitant]
  45. VANCOMYCIN [Concomitant]
  46. AMBIEN [Concomitant]
  47. KLOR-CON [Concomitant]
  48. LIPITOR [Concomitant]
  49. PANTOPRAZOLE [Concomitant]
  50. PERSANTINE [Concomitant]
  51. STOOL SOFTENER [Concomitant]
  52. TOBRAMYCIN [Concomitant]
  53. VALIUM [Concomitant]
  54. DIGOXIN [Suspect]
     Indication: PERIPARTUM CARDIOMYOPATHY
     Dosage: 0.25 MG; QID; PO
     Route: 048
     Dates: start: 19961009, end: 20080928
  55. LASIX [Concomitant]
  56. COREG [Concomitant]
  57. PROPO-N/APAP [Concomitant]
  58. NAPROXEN [Concomitant]
  59. ZITHROMAX [Concomitant]
  60. LEVAQUIN [Concomitant]
  61. MUCINEX [Concomitant]
  62. URSODIOL [Concomitant]
  63. HEPARIN [Concomitant]
  64. ALBUTEROL [Concomitant]
  65. VASOPRESSIN [Concomitant]
  66. ISUPREL [Concomitant]
  67. EPINEPHRINE [Concomitant]
  68. BUMEX [Concomitant]
  69. BACITRACIN [Concomitant]
  70. CARVEDILOL [Concomitant]
  71. CEFTIN [Concomitant]
  72. COUMADIN [Concomitant]
  73. ACETAMINOPHEN [Concomitant]
  74. URSODIOL [Concomitant]
  75. ZYRTEC [Concomitant]
  76. COMBIVENT [Concomitant]
  77. PRIMACOR [Concomitant]
  78. ZOFRAN [Concomitant]
  79. FOLIC ACID [Concomitant]
  80. PREGABALIN [Concomitant]
  81. VASOTEC [Concomitant]
  82. PROMETHAZINE W/ CODEINE [Concomitant]
  83. AZITHROMYCIN [Concomitant]
  84. DEMADEX [Concomitant]
  85. FLOLAN [Concomitant]
  86. FUROSEMIDE [Concomitant]
  87. ISUPREL [Concomitant]
  88. LYRICA [Concomitant]
  89. MERIDIA [Concomitant]
  90. PREVACID [Concomitant]
  91. PROPOXYPHENE HYDROCHLORIDE [Concomitant]
  92. SILDENAFIL [Concomitant]
  93. TORADOL [Concomitant]
  94. TPN [Concomitant]
  95. WALTUSSIS EXPECTORANT [Concomitant]
  96. ALUMINUM-MAGNESIUM HYDROXIDE [Concomitant]
  97. EXAPRO [Concomitant]
  98. MAG OXIDE [Concomitant]
  99. RAMIPRIL [Concomitant]
  100. POTASSIUM ACETATE [Concomitant]
  101. AMIODARONE HCL [Concomitant]
  102. PROVERA [Concomitant]
  103. PROTONIX [Concomitant]
  104. TOPROL-XL [Concomitant]
  105. HYDROCODONE [Concomitant]
  106. SKELAXIN [Concomitant]
  107. NATRECOR [Concomitant]
  108. XANAX [Concomitant]
  109. BUMETANIDE [Concomitant]
  110. INSULIN [Concomitant]
  111. ISUPREL [Concomitant]
  112. SEROQUEL [Concomitant]
  113. GLUTAMINE [Concomitant]
  114. ACETAMINOPHEN [Concomitant]
  115. MORPHINE [Concomitant]
  116. LIDODERM [Concomitant]
  117. MAGNESIUM OXIDE [Concomitant]
  118. CALCIUM [Concomitant]
  119. CEFTAZIDIME [Concomitant]
  120. CLONAZEPAM [Concomitant]
  121. LASIX [Concomitant]
  122. LUNESTA [Concomitant]
  123. METRONIDAZOLE [Concomitant]
  124. OSMOTROL [Concomitant]
  125. MERIDIA [Concomitant]
  126. ALTACE [Concomitant]
  127. CEFUROXIME [Concomitant]
  128. CYCLOBENZAPRINE [Concomitant]
  129. NASONEX [Concomitant]
  130. LORTAB [Concomitant]
  131. BENADRYL [Concomitant]
  132. PHENERGAN [Concomitant]
  133. COLACE [Concomitant]
  134. INSPRA [Concomitant]
  135. EPINEPHRINE [Concomitant]
  136. FENTANYL [Concomitant]
  137. VERSED [Concomitant]
  138. KLONOPIN [Concomitant]
  139. MONOPRIL [Concomitant]
  140. MILRINONE [Concomitant]
  141. CHLORHEXIDINE GLUCONATE [Concomitant]
  142. DARVOCET-N 50 [Concomitant]
  143. METOCLOPRAMIDE [Concomitant]
  144. PRINIVIL [Concomitant]
  145. SOLU-MEDROL [Concomitant]
  146. RIPHASIL [Concomitant]
  147. TEQUIN [Concomitant]
  148. ASPIRIN [Concomitant]
  149. NITROGLYCERIN [Concomitant]
  150. DEMEROL [Concomitant]
  151. CEFEPIME [Concomitant]
  152. LACTULOSE [Concomitant]
  153. ESCITALOPRAM [Concomitant]
  154. MEDROXYPROGESTERONE [Concomitant]
  155. CATAFLAM [Concomitant]
  156. CLINDAMYCIN [Concomitant]
  157. DOPAMINE HCL [Concomitant]
  158. IRON [Concomitant]
  159. LANSOPRAZOLE [Concomitant]
  160. LORAZEPAM [Concomitant]
  161. MIDAZOLAM [Concomitant]
  162. OVRAL-28 [Concomitant]
  163. ROCEPHIN [Concomitant]
  164. ZYPREXA [Concomitant]

REACTIONS (46)
  - COUGH [None]
  - CARDIAC FAILURE CONGESTIVE [None]
  - INTRACARDIAC THROMBUS [None]
  - BRONCHITIS [None]
  - URINARY TRACT INFECTION [None]
  - PLEURAL EFFUSION [None]
  - PULMONARY CONGESTION [None]
  - MYALGIA [None]
  - VOMITING [None]
  - PRESYNCOPE [None]
  - CARDIOMYOPATHY [None]
  - PERICARDIAL EFFUSION [None]
  - INJURY [None]
  - DYSPNOEA [None]
  - PYREXIA [None]
  - HYPERKINESIA [None]
  - CHOLECYSTITIS [None]
  - HYPERLIPIDAEMIA [None]
  - MULTI-ORGAN FAILURE [None]
  - ELECTROCARDIOGRAM T WAVE ABNORMAL [None]
  - PULMONARY OEDEMA [None]
  - ATELECTASIS [None]
  - PULMONARY HYPERTENSION [None]
  - ORTHOPNOEA [None]
  - CHEST DISCOMFORT [None]
  - ABDOMINAL PAIN UPPER [None]
  - RHINORRHOEA [None]
  - INSOMNIA [None]
  - ASTHENIA [None]
  - BLOOD GLUCOSE INCREASED [None]
  - LOBAR PNEUMONIA [None]
  - INFLUENZA LIKE ILLNESS [None]
  - NAUSEA [None]
  - WOUND INFECTION [None]
  - UTERINE CANCER [None]
  - FATIGUE [None]
  - PALPITATIONS [None]
  - MASS [None]
  - RENAL FAILURE [None]
  - PULMONARY VALVE INCOMPETENCE [None]
  - CARDIOMEGALY [None]
  - TUBERCULIN TEST POSITIVE [None]
  - FLANK PAIN [None]
  - HYPERTENSION [None]
  - ATRIAL FIBRILLATION [None]
  - SINUSITIS [None]
